FAERS Safety Report 10235675 (Version 1)
Quarter: 2014Q2

REPORT INFORMATION
  Report Type: Report from Study
  Country: JP (occurrence: JP)
  Receive Date: 20140613
  Receipt Date: 20140613
  Transmission Date: 20141212
  Serious: Yes (Death)
  Sender: FDA-Public Use
  Company Number: PHHY2014JP072154

PATIENT
  Age: 71 Year
  Sex: Male

DRUGS (4)
  1. ONBREZ [Suspect]
     Indication: CHRONIC OBSTRUCTIVE PULMONARY DISEASE
     Dosage: 150 UG, UNK
     Route: 055
  2. SPIRIVA [Concomitant]
  3. MEVALOTIN [Concomitant]
     Route: 048
  4. GASTER [Concomitant]

REACTIONS (2)
  - Cardio-respiratory arrest [Fatal]
  - Pneumothorax [Fatal]
